FAERS Safety Report 17892176 (Version 1)
Quarter: 2020Q2

REPORT INFORMATION
  Report Type: Spontaneous
  Country: ES (occurrence: ES)
  Receive Date: 20200613
  Receipt Date: 20200613
  Transmission Date: 20200714
  Serious: Yes (Other)
  Sender: FDA-Public Use
  Company Number: ES-AUROBINDO-AUR-APL-2020-028444

PATIENT
  Age: 57 Year
  Sex: Male

DRUGS (4)
  1. MEROPENEM. [Suspect]
     Active Substance: MEROPENEM
     Indication: COVID-19 PNEUMONIA
  2. ADIRO [Concomitant]
     Active Substance: ASPIRIN
     Indication: PROPHYLAXIS
     Dosage: 100 MILLIGRAM, ONCE A DAY (1-0-0)
     Route: 048
     Dates: start: 20200517, end: 20200525
  3. MEROPENEM. [Suspect]
     Active Substance: MEROPENEM
     Indication: PNEUMONIA
     Dosage: 2 GRAM, 3 TIMES A DAY
     Route: 042
     Dates: start: 20200521, end: 20200525
  4. BEMIPARIN [Concomitant]
     Active Substance: BEMIPARIN
     Indication: PULMONARY EMBOLISM
     Dosage: 10000 INTERNATIONAL UNIT, ONCE A DAY
     Route: 058
     Dates: start: 20200406, end: 20200525

REACTIONS (1)
  - Pancytopenia [Recovering/Resolving]

NARRATIVE: CASE EVENT DATE: 20200522
